FAERS Safety Report 5584566-4 (Version None)
Quarter: 2008Q1

REPORT INFORMATION
  Report Type: 
  Country: None (occurrence: None)
  Receive Date: 20080108
  Receipt Date: 20080103
  Transmission Date: 20080703
  Serious: Yes (Hospitalization)
  Sender: FDA-Public Use
  Company Number: FR-ASTRAZENECA-2007CG01682

PATIENT
  Age: 669 Month
  Sex: Male
  Weight: 110 kg

DRUGS (8)
  1. CRESTOR [Suspect]
     Indication: DYSLIPIDAEMIA
     Route: 048
     Dates: start: 20070214, end: 20071009
  2. CRESTOR [Suspect]
     Indication: HYPERCHOLESTEROLAEMIA
     Route: 048
     Dates: start: 20070214, end: 20071009
  3. CRESTOR [Suspect]
     Route: 048
     Dates: start: 20071128
  4. CRESTOR [Suspect]
     Route: 048
     Dates: start: 20071128
  5. VASTEN [Concomitant]
     Route: 048
  6. TAHOR [Concomitant]
     Route: 048
     Dates: end: 20070201
  7. EZETROL [Concomitant]
     Indication: HYPERCHOLESTEROLAEMIA
     Route: 048
     Dates: start: 20060801, end: 20071128
  8. LEVOTHYROX [Concomitant]

REACTIONS (1)
  - RHABDOMYOLYSIS [None]
